FAERS Safety Report 10161225 (Version 3)
Quarter: 2014Q2

REPORT INFORMATION
  Report Type: Report from Study
  Country: MX (occurrence: MX)
  Receive Date: 20140508
  Receipt Date: 20140609
  Transmission Date: 20141212
  Serious: Yes (Death, Other)
  Sender: FDA-Public Use
  Company Number: PHHY2014MX056014

PATIENT
  Age: 69 Year
  Sex: Male

DRUGS (1)
  1. EXFORGE HCT [Suspect]
     Indication: HYPERTENSION
     Dosage: UNK DF (320/10/25MG), UNK
     Route: 048

REACTIONS (9)
  - Death [Fatal]
  - Cerebrovascular accident [Unknown]
  - Hemiplegia [Unknown]
  - Eye disorder [Unknown]
  - Myocardial infarction [Unknown]
  - Syncope [Unknown]
  - Blood pressure increased [Unknown]
  - Muscular weakness [Unknown]
  - General physical health deterioration [Unknown]
